FAERS Safety Report 11802028 (Version 1)
Quarter: 2015Q4

REPORT INFORMATION
  Report Type: Spontaneous
  Country: MY (occurrence: MY)
  Receive Date: 20151204
  Receipt Date: 20151204
  Transmission Date: 20160305
  Serious: Yes (Death)
  Sender: FDA-Public Use
  Company Number: MY-GLAXOSMITHKLINE-MY2015GSK171560

PATIENT
  Age: 64 Year
  Sex: Female

DRUGS (2)
  1. CEFTRIAXONE. [Concomitant]
     Active Substance: CEFTRIAXONE
  2. ZOVIRAX [Suspect]
     Active Substance: ACYCLOVIR
     Indication: ENCEPHALITIS
     Dosage: 1.8 G, QD
     Route: 042
     Dates: start: 20140911

REACTIONS (1)
  - Blood creatinine increased [Fatal]

NARRATIVE: CASE EVENT DATE: 20140913
